FAERS Safety Report 13655524 (Version 1)
Quarter: 2017Q2

REPORT INFORMATION
  Report Type: Spontaneous
  Country: US (occurrence: US)
  Receive Date: 20170614
  Receipt Date: 20170614
  Transmission Date: 20170830
  Serious: No
  Sender: FDA-Public Use
  Company Number: None

PATIENT
  Age: 80 Year
  Sex: Male
  Weight: 75.8 kg

DRUGS (1)
  1. DOCETAXEL 160MG/16ML [Suspect]
     Active Substance: DOCETAXEL
     Indication: PROSTATE CANCER
     Route: 042
     Dates: start: 20170614

REACTIONS (3)
  - Infusion related reaction [None]
  - Hypotension [None]
  - Dizziness [None]

NARRATIVE: CASE EVENT DATE: 20170614
